FAERS Safety Report 5679792-X (Version None)
Quarter: 2008Q1

REPORT INFORMATION
  Report Type: 
  Country: None (occurrence: None)
  Receive Date: 20080321
  Receipt Date: 20080313
  Transmission Date: 20080703
  Serious: Yes (Hospitalization)
  Sender: FDA-Public Use
  Company Number: 2008SP005156

PATIENT
  Age: 35 Year
  Sex: Male
  Weight: 96 kg

DRUGS (3)
  1. PEG-INTRON [Suspect]
     Indication: HEPATITIS C
     Dosage: 1.5 MCG/KG; QW
  2. REBETOL [Suspect]
     Indication: HEPATITIS C
     Dosage: 1200 MG; QD; PO
     Route: 048
  3. POLARAMIN (DEXCHLORPHENIRAMINE MALEATE (INJECTABLE) [Concomitant]

REACTIONS (12)
  - ALOPECIA [None]
  - BALANCE DISORDER [None]
  - COORDINATION ABNORMAL [None]
  - HYPOAESTHESIA [None]
  - MALAISE [None]
  - NAUSEA [None]
  - ORAL FUNGAL INFECTION [None]
  - PRURITUS [None]
  - PYREXIA [None]
  - RASH [None]
  - SPEECH DISORDER [None]
  - WEIGHT DECREASED [None]
